FAERS Safety Report 20328722 (Version 1)
Quarter: 2022Q1

REPORT INFORMATION
  Report Type: Spontaneous
  Country: US (occurrence: US)
  Receive Date: 20220112
  Receipt Date: 20220112
  Transmission Date: 20220423
  Serious: No
  Sender: FDA-Public Use
  Company Number: US-SLATE RUN PHARMACEUTICALS-22US000856

PATIENT

DRUGS (8)
  1. DROXIDOPA [Suspect]
     Active Substance: DROXIDOPA
     Indication: Orthostatic hypotension
     Dosage: 100 MILLIGRAM, TID,TITRATED AS TOLERATED
  2. CYCLOPHOSPHAMIDE [Concomitant]
     Active Substance: CYCLOPHOSPHAMIDE
     Indication: Paraproteinaemia
  3. BORTEZOMIB [Concomitant]
     Active Substance: BORTEZOMIB
     Indication: Paraproteinaemia
  4. MIDODRINE [Concomitant]
     Active Substance: MIDODRINE
     Indication: Orthostatic hypotension
     Dosage: 5 TO 15MG TID BASED ON INDIVIDUAL TOLERANCE
  5. DARATUMUMAB [Concomitant]
     Active Substance: DARATUMUMAB
     Indication: Paraproteinaemia
  6. VENETOCLAX [Concomitant]
     Active Substance: VENETOCLAX
     Indication: Paraproteinaemia
  7. DEXAMETHASONE [Concomitant]
     Active Substance: DEXAMETHASONE
     Indication: Paraproteinaemia
  8. FLUDROCORTISONE ACETATE [Concomitant]
     Active Substance: FLUDROCORTISONE ACETATE
     Indication: Orthostatic hypotension
     Dosage: 0.05 TO 0.2MG DAILY, USE LIMITED BY FLUID RETENTION

REACTIONS (2)
  - Therapy non-responder [Unknown]
  - Supine hypertension [Unknown]
